FAERS Safety Report 5963185-1 (Version None)
Quarter: 2008Q4

REPORT INFORMATION
  Report Type: 
  Country: None (occurrence: None)
  Receive Date: 20081119
  Receipt Date: 20080912
  Transmission Date: 20090506
  Serious: No
  Sender: FDA-Public Use
  Company Number: WAES 0806USA08816

PATIENT
  Age: 56 Year
  Sex: Female
  Weight: 117.9352 kg

DRUGS (8)
  1. JANUVIA [Suspect]
     Indication: DIABETES MELLITUS
     Dosage: 1X/PO ; 100 MG/DAILY/PO
     Route: 048
     Dates: start: 20080626, end: 20080626
  2. JANUVIA [Suspect]
     Indication: DIABETES MELLITUS
     Dosage: 1X/PO ; 100 MG/DAILY/PO
     Route: 048
     Dates: start: 20080626, end: 20080626
  3. CRESTOR [Concomitant]
  4. GLUCOPHAGE [Concomitant]
  5. PRILOSEC [Concomitant]
  6. SYNTHROID [Concomitant]
  7. WELLBUTRIN [Concomitant]
  8. ZOLOFT [Concomitant]

REACTIONS (3)
  - HYPOAESTHESIA [None]
  - PARAESTHESIA [None]
  - WRONG TECHNIQUE IN DRUG USAGE PROCESS [None]
